FAERS Safety Report 18696497 (Version 1)
Quarter: 2021Q1

REPORT INFORMATION
  Report Type: Spontaneous
  Country: US (occurrence: US)
  Receive Date: 20210104
  Receipt Date: 20210104
  Transmission Date: 20210419
  Serious: No
  Sender: FDA-Public Use
  Company Number: US-UPSHER-SMITH LABORATORIES, LLC-2020USL00319

PATIENT
  Age: 88 Year
  Sex: Male
  Weight: 90.7 kg

DRUGS (3)
  1. KLOR?CON M [Suspect]
     Active Substance: POTASSIUM CHLORIDE
     Indication: BLOOD POTASSIUM DECREASED
     Dosage: UNK
     Route: 048
  2. KLOR?CON M [Suspect]
     Active Substance: POTASSIUM CHLORIDE
     Dosage: 20 MEQ, 2X/DAY
     Route: 048
     Dates: end: 20200510
  3. UNSPECIFIED BLOOD THINNER [Concomitant]
     Active Substance: UNSPECIFIED INGREDIENT
     Dosage: UNK
     Dates: start: 2020

REACTIONS (1)
  - Muscle spasms [Recovered/Resolved]

NARRATIVE: CASE EVENT DATE: 20200505
